FAERS Safety Report 7008198-6 (Version None)
Quarter: 2010Q3

REPORT INFORMATION
  Report Type: 
  Country: None (occurrence: None)
  Receive Date: 20100922
  Receipt Date: 20100910
  Transmission Date: 20110219
  Serious: Yes (Death, Other)
  Sender: FDA-Public Use
  Company Number: US-PFIZER INC-2010115453

PATIENT
  Sex: Female

DRUGS (3)
  1. NEURONTIN [Suspect]
     Dosage: UNK
     Dates: start: 20100101
  2. VALSARTAN [Concomitant]
     Dosage: 40 MG
  3. DEPAKOTE [Concomitant]

REACTIONS (4)
  - BLOOD CALCIUM INCREASED [None]
  - DEATH [None]
  - DEHYDRATION [None]
  - EXERCISE LACK OF [None]
